FAERS Safety Report 19427134 (Version 2)
Quarter: 2021Q3

REPORT INFORMATION
  Report Type: Spontaneous
  Country: US (occurrence: US)
  Receive Date: 20210617
  Receipt Date: 20210712
  Transmission Date: 20211014
  Serious: Yes (Other)
  Sender: FDA-Public Use
  Company Number: US-GILEAD-2021-0536032

PATIENT
  Age: 62 Year
  Sex: Male

DRUGS (8)
  1. VIAQVA [Concomitant]
  2. AMLODIPINE [Concomitant]
     Active Substance: AMLODIPINE BESYLATE
  3. ALBUTEROL [SALBUTAMOL] [Concomitant]
     Active Substance: ALBUTEROL
  4. ATROVENT [Concomitant]
     Active Substance: IPRATROPIUM BROMIDE
  5. HYDROXYZINE [Concomitant]
     Active Substance: HYDROXYZINE HYDROCHLORIDE
  6. LISINOPRIL. [Concomitant]
     Active Substance: LISINOPRIL
  7. METOPROLOL. [Concomitant]
     Active Substance: METOPROLOL
  8. EPCLUSA [Suspect]
     Active Substance: SOFOSBUVIR\VELPATASVIR
     Indication: PRODUCT USED FOR UNKNOWN INDICATION
     Dosage: 1 DOSAGE FORM
     Route: 048
     Dates: start: 20210520, end: 20210612

REACTIONS (2)
  - Psychotic disorder [Recovered/Resolved]
  - Post-traumatic stress disorder [Recovered/Resolved]

NARRATIVE: CASE EVENT DATE: 20210607
